FAERS Safety Report 6609992-3 (Version None)
Quarter: 2010Q1

REPORT INFORMATION
  Report Type: 
  Country: None (occurrence: None)
  Receive Date: 20100302
  Receipt Date: 20100215
  Transmission Date: 20100710
  Serious: Yes (Death)
  Sender: FDA-Public Use
  Company Number: US-JNJFOC-20100210010

PATIENT
  Sex: Male
  Weight: 77.11 kg

DRUGS (10)
  1. FENTANYL [Suspect]
     Indication: DRUG USE FOR UNKNOWN INDICATION
     Route: 048
  2. LEVORPHANOL TARTRATE [Suspect]
     Indication: DRUG USE FOR UNKNOWN INDICATION
     Route: 065
  3. DEXTROMETHORPHAN [Suspect]
     Indication: DRUG USE FOR UNKNOWN INDICATION
     Route: 065
  4. NICOTINE [Concomitant]
     Route: 065
  5. PHENIRAMINE [Concomitant]
     Route: 065
  6. THEOBROMINE [Concomitant]
     Route: 065
  7. CAFFEINE CITRATE [Concomitant]
     Route: 065
  8. ATROPINE [Concomitant]
     Route: 065
  9. DIPHENYHYDRAMINE [Concomitant]
     Route: 065
  10. CANNABIS SATIVA [Concomitant]
     Route: 065

REACTIONS (2)
  - DRUG TOXICITY [None]
  - INTENTIONAL DRUG MISUSE [None]
